FAERS Safety Report 9291683 (Version 2)
Quarter: 2013Q2

REPORT INFORMATION
  Report Type: Spontaneous
  Country: US (occurrence: US)
  Receive Date: 20130516
  Receipt Date: 20130521
  Transmission Date: 20140414
  Serious: No
  Sender: FDA-Public Use
  Company Number: US-009507513-1305USA008132

PATIENT
  Age: 14 Year
  Sex: Female
  Weight: 68.93 kg

DRUGS (1)
  1. IMPLANON [Suspect]
     Dosage: UNK
     Route: 065
     Dates: start: 201105, end: 20130510

REACTIONS (5)
  - Limb discomfort [Recovering/Resolving]
  - Menorrhagia [Unknown]
  - Menstruation irregular [Unknown]
  - Device difficult to use [Recovering/Resolving]
  - Device breakage [Recovering/Resolving]
